FAERS Safety Report 12282247 (Version 1)
Quarter: 2016Q2

REPORT INFORMATION
  Report Type: Spontaneous
  Country: US (occurrence: US)
  Receive Date: 20160419
  Receipt Date: 20160419
  Transmission Date: 20160815
  Serious: No
  Sender: FDA-Public Use
  Company Number: US-GUERBET LLC-1050717

PATIENT
  Age: 45 Year
  Sex: Female
  Weight: 81.82 kg

DRUGS (1)
  1. DOTAREM [Suspect]
     Active Substance: GADOTERATE MEGLUMINE
     Indication: NUCLEAR MAGNETIC RESONANCE IMAGING
     Route: 042
     Dates: start: 20160325, end: 20160325

REACTIONS (4)
  - Erythema [Recovering/Resolving]
  - Confusional state [Recovering/Resolving]
  - Oropharyngeal pain [Recovering/Resolving]
  - Nightmare [Recovering/Resolving]

NARRATIVE: CASE EVENT DATE: 20160325
